FAERS Safety Report 7718122-6 (Version None)
Quarter: 2011Q3

REPORT INFORMATION
  Report Type: 
  Country: None (occurrence: None)
  Receive Date: 20110830
  Receipt Date: 20110820
  Transmission Date: 20111222
  Serious: Yes (Hospitalization)
  Sender: FDA-Public Use
  Company Number: US-JNJFOC-20110703535

PATIENT
  Sex: Female
  Weight: 81.56 kg

DRUGS (4)
  1. REMICADE [Suspect]
     Indication: CROHN'S DISEASE
     Dosage: HAS BEEN ON REMICADEFOR ~4-5 YEARS
     Route: 042
     Dates: start: 20110610
  2. ASACOL [Concomitant]
  3. REMICADE [Suspect]
     Dosage: HAS BEEN ON REMICADEFOR ~4-5 YEARS
     Route: 042
     Dates: start: 20070101, end: 20110101
  4. AZATHIOPRINE [Concomitant]

REACTIONS (4)
  - NECK PAIN [None]
  - RESPIRATORY ARREST [None]
  - INFECTION [None]
  - HEADACHE [None]
